FAERS Safety Report 20750076 (Version 1)
Quarter: 2022Q2

REPORT INFORMATION
  Report Type: Spontaneous
  Country: BE (occurrence: BE)
  Receive Date: 20220426
  Receipt Date: 20220426
  Transmission Date: 20220721
  Serious: Yes (Death, Hospitalization, Other)
  Sender: FDA-Public Use
  Company Number: BE-SLATE RUN PHARMACEUTICALS-22BE001046

PATIENT

DRUGS (8)
  1. GANCICLOVIR [Suspect]
     Active Substance: GANCICLOVIR
     Indication: Human herpesvirus 6 infection
     Dosage: 5 MILLIGRAM PER KILOGRAM, Q 12 HR
     Route: 042
  2. FOSCARNET [Suspect]
     Active Substance: FOSCARNET
     Indication: Treatment failure
     Dosage: UNK
  3. PLATELETS [Concomitant]
     Active Substance: HUMAN PLATELET, ALLOGENIC
     Indication: Thrombocytopenia
  4. ACYCLOVIR [Concomitant]
     Active Substance: ACYCLOVIR
     Indication: Meningoencephalitis herpetic
  5. CARMUSTINE [Concomitant]
     Active Substance: CARMUSTINE
     Indication: B-cell lymphoma
     Dosage: HIGH-DOSE
  6. ETOPOSIDE [Concomitant]
     Active Substance: ETOPOSIDE
     Indication: B-cell lymphoma
     Dosage: HIGH-DOSE
  7. CYTARABINE [Concomitant]
     Active Substance: CYTARABINE
     Indication: B-cell lymphoma
  8. MELPHALAN [Concomitant]
     Active Substance: MELPHALAN
     Indication: B-cell lymphoma
     Dosage: HIGH-DOSE

REACTIONS (4)
  - Death [Fatal]
  - Pneumonia [Unknown]
  - Candida infection [Unknown]
  - Off label use [Unknown]
